FAERS Safety Report 8792094 (Version 1)
Quarter: 2012Q4

REPORT INFORMATION
  Report Type: 
  Country: US (occurrence: US)
  Receive Date: 20120918
  Receipt Date: 20120918
  Transmission Date: 20130627
  Serious: Yes (Death, Hospitalization)
  Sender: FDA-Public Use
  Company Number: US-SHIRE-ALL1-2012-04239

PATIENT
  Age: 70 Year
  Sex: Female

DRUGS (1)
  1. MESALAZINE [Suspect]
     Indication: CROHN^S DISEASE
     Dosage: 500 mg, 4x/day:qid
     Route: 048

REACTIONS (4)
  - Interstitial lung disease [Fatal]
  - Off label use [Not Recovered/Not Resolved]
  - Toxicity to various agents [None]
  - Incorrect drug administration duration [None]
